FAERS Safety Report 10394123 (Version 1)
Quarter: 2014Q3

REPORT INFORMATION
  Report Type: Spontaneous
  Country: JP (occurrence: JP)
  Receive Date: 20140819
  Receipt Date: 20140819
  Transmission Date: 20150326
  Serious: Yes (Death, Other)
  Sender: FDA-Public Use
  Company Number: PHHY2010JP096499

PATIENT
  Age: 58 Year
  Sex: Male

DRUGS (1)
  1. EXJADE [Suspect]
     Active Substance: DEFERASIROX
     Indication: APLASTIC ANAEMIA
     Dosage: 30 MG/KG, DAILY
     Dates: start: 20080421

REACTIONS (2)
  - Aplastic anaemia [Unknown]
  - Death [Fatal]

NARRATIVE: CASE EVENT DATE: 20090506
